FAERS Safety Report 6860043-5 (Version None)
Quarter: 2010Q3

REPORT INFORMATION
  Report Type: 
  Country: None (occurrence: None)
  Receive Date: 20100720
  Receipt Date: 20100712
  Transmission Date: 20110219
  Serious: Yes (Other)
  Sender: FDA-Public Use
  Company Number: US-PFIZER INC-2008089446

PATIENT
  Sex: Female

DRUGS (1)
  1. BEXTRA [Suspect]
     Indication: PAIN IN EXTREMITY
     Dosage: 10 MG, UNK
     Route: 048

REACTIONS (4)
  - ACUTE SINUSITIS [None]
  - ARTERIOSCLEROSIS [None]
  - DIARRHOEA [None]
  - STEVENS-JOHNSON SYNDROME [None]
